APPROVED DRUG PRODUCT: LEVOFLOXACIN
Active Ingredient: LEVOFLOXACIN
Strength: 500MG
Dosage Form/Route: TABLET;ORAL
Application: A202801 | Product #002 | TE Code: AB
Applicant: HETERO LABS LTD UNIT V
Approved: Jan 8, 2015 | RLD: No | RS: No | Type: RX